FAERS Safety Report 12378821 (Version 9)
Quarter: 2018Q1

REPORT INFORMATION
  Report Type: Report from Study
  Country: US (occurrence: US)
  Receive Date: 20160517
  Receipt Date: 20180322
  Transmission Date: 20180508
  Serious: Yes (Hospitalization)
  Sender: FDA-Public Use
  Company Number: US-ACTELION-A-NJ2016-134085

PATIENT
  Age: 51 Year
  Sex: Female
  Weight: 97.51 kg

DRUGS (10)
  1. TORSEMIDE. [Concomitant]
     Active Substance: TORSEMIDE
  2. ASA [Concomitant]
     Active Substance: ASPIRIN
  3. VELETRI [Suspect]
     Active Substance: EPOPROSTENOL
     Dosage: 10.5 NG/KG, PER MIN
     Route: 042
     Dates: start: 20151211
  4. SYNTHROID [Concomitant]
     Active Substance: LEVOTHYROXINE SODIUM
  5. PROTONIX [Concomitant]
     Active Substance: PANTOPRAZOLE SODIUM
  6. POTASSIUM [Concomitant]
     Active Substance: POTASSIUM
  7. ALDACTONE [Concomitant]
     Active Substance: SPIRONOLACTONE
  8. SILDENAFIL. [Suspect]
     Active Substance: SILDENAFIL
     Indication: PRODUCT USED FOR UNKNOWN INDICATION
     Route: 048
  9. VELETRI [Suspect]
     Active Substance: EPOPROSTENOL
     Indication: PULMONARY ARTERIAL HYPERTENSION
     Dosage: 17 NG/KG, PER MIN
     Route: 042
  10. ADEMPAS [Concomitant]
     Active Substance: RIOCIGUAT

REACTIONS (15)
  - Catheter site inflammation [Recovered/Resolved]
  - Headache [Unknown]
  - Device related sepsis [Recovered/Resolved]
  - Catheter site infection [Recovered/Resolved]
  - Catheter site erythema [Recovered/Resolved]
  - Blood culture positive [Recovered/Resolved]
  - Catheter site pain [Recovered/Resolved]
  - Neck pain [Recovered/Resolved]
  - Catheter management [Unknown]
  - Flushing [Unknown]
  - Catheter site swelling [Recovered/Resolved]
  - Device related infection [Recovering/Resolving]
  - Rash pruritic [Recovered/Resolved]
  - Catheter site pruritus [Unknown]
  - Infection [Recovered/Resolved]

NARRATIVE: CASE EVENT DATE: 20171202
